FAERS Safety Report 6713860-6 (Version None)
Quarter: 2010Q2

REPORT INFORMATION
  Report Type: 
  Country: None (occurrence: None)
  Receive Date: 20100506
  Receipt Date: 20100429
  Transmission Date: 20101027
  Serious: Yes (Death)
  Sender: FDA-Public Use
  Company Number: US-MERCK-1004USA04609

PATIENT
  Age: 59 Year
  Sex: Female

DRUGS (1)
  1. SINGULAIR [Suspect]
     Route: 048

REACTIONS (1)
  - LUNG NEOPLASM MALIGNANT [None]
